FAERS Safety Report 6538129-4 (Version None)
Quarter: 2010Q1

REPORT INFORMATION
  Report Type: 
  Country: None (occurrence: None)
  Receive Date: 20100114
  Receipt Date: 20100111
  Transmission Date: 20100710
  Serious: Yes (Other)
  Sender: FDA-Public Use
  Company Number: NO-PFIZER INC-2010003986

PATIENT
  Age: 50 Year
  Sex: Female

DRUGS (3)
  1. SALAZOPYRIN [Suspect]
     Indication: ARTHRITIS
     Dosage: INCREASING DOSAGE, 1500 MG DAILY AT TIME OF WITHDRAWAL
     Route: 048
  2. BREXIDOL [Concomitant]
     Indication: ARTHRITIS
     Route: 048
  3. ARCOXIA [Concomitant]

REACTIONS (1)
  - LUPUS NEPHRITIS [None]
